FAERS Safety Report 6969090-6 (Version None)
Quarter: 2010Q3

REPORT INFORMATION
  Report Type: 
  Country: None (occurrence: None)
  Receive Date: 20100907
  Receipt Date: 20100902
  Transmission Date: 20110219
  Serious: Yes (Other)
  Sender: FDA-Public Use
  Company Number: US-BRISTOL-MYERS SQUIBB COMPANY-15269525

PATIENT
  Age: 80 Year
  Sex: Male
  Weight: 79 kg

DRUGS (14)
  1. COUMADIN [Suspect]
  2. VIAGRA [Suspect]
     Indication: ERECTILE DYSFUNCTION
     Dosage: 50MG
     Route: 048
     Dates: end: 20070101
  3. CAVERJECT [Suspect]
     Indication: ERECTILE DYSFUNCTION
     Dates: start: 20070101, end: 20100101
  4. CELEBREX [Suspect]
     Dosage: CAPS
     Dates: end: 20100101
  5. OMEPRAZOLE [Concomitant]
  6. CENTRUM SILVER [Concomitant]
  7. NIASPAN [Concomitant]
  8. LASIX [Concomitant]
  9. ASPIRIN [Concomitant]
  10. ATENOLOL [Concomitant]
  11. IRON [Concomitant]
  12. ACETAMINOPHEN [Concomitant]
  13. SIMVASTATIN [Concomitant]
  14. NIFEDIPINE [Concomitant]

REACTIONS (5)
  - ABDOMINAL DISCOMFORT [None]
  - BLISTER [None]
  - GASTRIC HAEMORRHAGE [None]
  - PHOTOSENSITIVITY REACTION [None]
  - THROMBOSIS [None]
